FAERS Safety Report 7302368-5 (Version None)
Quarter: 2011Q1

REPORT INFORMATION
  Report Type: 
  Country: None (occurrence: None)
  Receive Date: 20110218
  Receipt Date: 20110209
  Transmission Date: 20110831
  Serious: Yes (Hospitalization)
  Sender: FDA-Public Use
  Company Number: US-PFIZER INC-2011029220

PATIENT
  Sex: Female

DRUGS (3)
  1. TRIPTORELIN ACETATE [Suspect]
     Indication: BREAST CANCER
     Dosage: 3.75 MG, UNK
     Route: 030
     Dates: start: 20070725
  2. ZOLEDRONIC ACID [Suspect]
  3. EXEMESTANE [Suspect]
     Indication: BREAST CANCER
     Dosage: 25 MG, UNK
     Route: 048
     Dates: start: 20070730, end: 20110129

REACTIONS (1)
  - PULMONARY EMBOLISM [None]
